FAERS Safety Report 7457005-6 (Version None)
Quarter: 2011Q2

REPORT INFORMATION
  Report Type: 
  Country: None (occurrence: None)
  Receive Date: 20110504
  Receipt Date: 20110419
  Transmission Date: 20111010
  Serious: Yes (Other)
  Sender: FDA-Public Use
  Company Number: US-JNJFOC-20110401732

PATIENT
  Sex: Female
  Weight: 80.74 kg

DRUGS (7)
  1. REMICADE [Suspect]
     Route: 042
  2. OXYCODONE [Concomitant]
  3. UNSPECIFIED DEPRESSION MEDICATION [Concomitant]
  4. METHOTREXATE [Concomitant]
  5. SLEEP MEDICATION NOS [Concomitant]
  6. REMICADE [Suspect]
     Indication: CROHN'S DISEASE
     Route: 042
  7. REMICADE [Suspect]
     Route: 042

REACTIONS (18)
  - PSORIATIC ARTHROPATHY [None]
  - RHEUMATOID ARTHRITIS [None]
  - BACK PAIN [None]
  - RASH GENERALISED [None]
  - PYREXIA [None]
  - LEUKOCYTOSIS [None]
  - ONYCHOCLASIS [None]
  - ACTIVITIES OF DAILY LIVING IMPAIRED [None]
  - NAIL DISORDER [None]
  - EAR INFECTION [None]
  - SYSTEMIC LUPUS ERYTHEMATOSUS [None]
  - STAPHYLOCOCCAL INFECTION [None]
  - JOINT EFFUSION [None]
  - ANTIBODY TEST POSITIVE [None]
  - PSORIASIS [None]
  - ECZEMA [None]
  - HEPATIC ENZYME INCREASED [None]
  - ALOPECIA [None]
